FAERS Safety Report 4543611-5 (Version None)
Quarter: 2005Q1

REPORT INFORMATION
  Report Type: 
  Country: None (occurrence: None)
  Receive Date: 20050103
  Receipt Date: 20041222
  Transmission Date: 20050727
  Serious: Yes (Hospitalization)
  Sender: FDA-Public Use
  Company Number: FR-GLAXOSMITHKLINE-B0362518A

PATIENT
  Age: 23 Year
  Sex: Female

DRUGS (5)
  1. EPIVIR [Suspect]
     Indication: HIV INFECTION
     Dosage: 300MG PER DAY
     Route: 048
     Dates: start: 20010201, end: 20030321
  2. VIRAMUNE [Suspect]
     Indication: HIV INFECTION
     Route: 048
     Dates: start: 20030214, end: 20030316
  3. ZERIT [Suspect]
     Indication: HIV INFECTION
     Dosage: 40MG TWICE PER DAY
     Route: 048
     Dates: start: 20010201, end: 20030321
  4. DI ANTALVIC [Suspect]
     Dosage: 2CAP PER DAY
     Route: 048
     Dates: start: 20010101, end: 20030317
  5. DOXY [Suspect]
     Dosage: 100MG PER DAY
     Route: 048
     Dates: start: 20030204, end: 20030213

REACTIONS (12)
  - ANAEMIA [None]
  - CONJUNCTIVITIS [None]
  - COUGH [None]
  - DYSPHAGIA [None]
  - DYSURIA [None]
  - GENITAL BURNING SENSATION [None]
  - MUCOSAL EROSION [None]
  - PERIORBITAL OEDEMA [None]
  - PRURITUS [None]
  - PYREXIA [None]
  - RASH MACULO-PAPULAR [None]
  - STEVENS-JOHNSON SYNDROME [None]
